FAERS Safety Report 4325755-6 (Version None)
Quarter: 2004Q1

REPORT INFORMATION
  Report Type: 
  Country: None (occurrence: None)
  Receive Date: 20040323
  Receipt Date: 20040305
  Transmission Date: 20041129
  Serious: Yes (Hospitalization)
  Sender: FDA-Public Use
  Company Number: 2004AP01360

PATIENT
  Age: 16 Year
  Sex: Female
  Weight: 60 kg

DRUGS (8)
  1. MERREM [Suspect]
     Indication: INFECTION
     Dosage: 500 MG TID IV
     Route: 042
     Dates: start: 20040110, end: 20040119
  2. MERREM [Suspect]
     Indication: INFECTION
     Dosage: 600 MG TID IV
     Route: 042
     Dates: start: 20040123, end: 20040125
  3. VALPROATE SODIUM [Suspect]
     Indication: CONVULSION
     Dosage: 2100 MG DAILY
  4. USODEOXYCHOLIC ACID [Concomitant]
  5. GABAPENTIN [Concomitant]
  6. CARNITINE [Concomitant]
  7. VANCOMYCIN [Concomitant]
  8. GENTAMICIN [Concomitant]

REACTIONS (3)
  - DRUG INTERACTION [None]
  - DRUG LEVEL DECREASED [None]
  - STATUS EPILEPTICUS [None]
